FAERS Safety Report 11417404 (Version 1)
Quarter: 2015Q3

REPORT INFORMATION
  Report Type: Spontaneous
  Country: GB (occurrence: GB)
  Receive Date: 20150825
  Receipt Date: 20150825
  Transmission Date: 20151125
  Serious: Yes (Other)
  Sender: FDA-Public Use
  Company Number: PHFR2015GB006182

PATIENT
  Sex: Female

DRUGS (4)
  1. CLOZARIL [Suspect]
     Active Substance: CLOZAPINE
     Dosage: 625 MG, QD
     Route: 048
  2. CLOZARIL [Suspect]
     Active Substance: CLOZAPINE
     Dosage: 600 MG, QD
     Route: 048
  3. CLOZARIL [Suspect]
     Active Substance: CLOZAPINE
     Indication: SCHIZOPHRENIA
     Dosage: UNK
     Route: 048
     Dates: start: 20070719
  4. CLOZARIL [Suspect]
     Active Substance: CLOZAPINE
     Dosage: 550 MG, QD
     Route: 048

REACTIONS (4)
  - Electrocardiogram T wave abnormal [Unknown]
  - Antipsychotic drug level increased [Not Recovered/Not Resolved]
  - Electrocardiogram QT prolonged [Not Recovered/Not Resolved]
  - Schizophrenia [Unknown]

NARRATIVE: CASE EVENT DATE: 2014
